FAERS Safety Report 8485076-7 (Version None)
Quarter: 2012Q3

REPORT INFORMATION
  Report Type: 
  Country: None (occurrence: None)
  Receive Date: 20120703
  Receipt Date: 20120629
  Transmission Date: 20120928
  Serious: Yes (Death, Hospitalization)
  Sender: FDA-Public Use
  Company Number: BR-BAYER-2012-065065

PATIENT
  Age: 73 Year
  Sex: Male

DRUGS (7)
  1. DIMETICONE [Concomitant]
     Dosage: UNK
     Dates: start: 20090915
  2. PLAMET [Concomitant]
     Dosage: UNK
     Dates: start: 20091122
  3. PLACEBO [Suspect]
     Indication: HEPATIC NEOPLASM MALIGNANT
     Dosage: UNK
     Route: 048
     Dates: start: 20091013, end: 20091112
  4. TRAMADOL HCL [Concomitant]
     Dosage: UNK
     Dates: start: 20090923
  5. SCOPOLAMINE [Concomitant]
     Dosage: UNK
     Dates: start: 20090915
  6. LACTULONA [Concomitant]
     Dosage: UNK
     Dates: start: 20091122, end: 20091122
  7. SORAFENIB (RAF KINASE INHIBITOR) [Suspect]
     Indication: HEPATIC NEOPLASM MALIGNANT
     Dosage: 800 MG, QD
     Route: 048
     Dates: start: 20091013, end: 20091112

REACTIONS (5)
  - NAUSEA [None]
  - MUSCULAR WEAKNESS [None]
  - HEPATIC ENCEPHALOPATHY [None]
  - NEOPLASM MALIGNANT [None]
  - ASTHENIA [None]
